FAERS Safety Report 8098422-3 (Version None)
Quarter: 2012Q1

REPORT INFORMATION
  Report Type: 
  Country: None (occurrence: None)
  Receive Date: 20120131
  Receipt Date: 20120119
  Transmission Date: 20120608
  Serious: Yes (Life-Threatening, Hospitalization)
  Sender: FDA-Public Use
  Company Number: JP-JNJFOC-20120102848

PATIENT
  Sex: Female
  Weight: 49.7 kg

DRUGS (7)
  1. TYLENOL (CAPLET) [Suspect]
     Indication: NASOPHARYNGITIS
     Route: 048
     Dates: start: 20111101, end: 20120103
  2. COUGH SYRUP [Concomitant]
     Indication: COUGH
     Route: 048
     Dates: end: 20111210
  3. TYLENOL (CAPLET) [Suspect]
     Indication: PYREXIA
     Route: 048
     Dates: start: 20111101, end: 20120103
  4. STOMACH AGENT [Suspect]
     Indication: GASTRIC DISORDER
     Route: 048
     Dates: start: 20111210, end: 20120103
  5. DEXTROMETHORPHAN HYDROBROMIDE [Concomitant]
     Dates: start: 20120104
  6. AMBROXOL [Concomitant]
     Dates: start: 20120104
  7. SELBEX [Concomitant]
     Dates: start: 20120104

REACTIONS (2)
  - HEPATITIS FULMINANT [None]
  - MALAISE [None]
